FAERS Safety Report 7884184-9 (Version None)
Quarter: 2011Q4

REPORT INFORMATION
  Report Type: 
  Country: None (occurrence: None)
  Receive Date: 20111102
  Receipt Date: 20111024
  Transmission Date: 20120403
  Serious: Yes (Hospitalization)
  Sender: FDA-Public Use
  Company Number: US-GLAXOSMITHKLINE-B0759455A

PATIENT

DRUGS (1)
  1. BUPROPION HCL [Suspect]
     Indication: ANTIDEPRESSANT THERAPY
     Route: 064

REACTIONS (4)
  - HYPOGLYCAEMIA [None]
  - HYPERINSULINISM [None]
  - MATERNAL EXPOSURE DURING PREGNANCY [None]
  - CONVULSION [None]
